FAERS Safety Report 6196032-6 (Version None)
Quarter: 2009Q2

REPORT INFORMATION
  Report Type: 
  Country: None (occurrence: None)
  Receive Date: 20090520
  Receipt Date: 20031216
  Transmission Date: 20091009
  Serious: Yes (Hospitalization)
  Sender: FDA-Public Use
  Company Number: NL-ROCHE-601227

PATIENT
  Sex: Male

DRUGS (1)
  1. CAPECITABINE [Suspect]
     Dosage: DOSAGE REPORTED AS: 2X2650 MG
     Route: 048
     Dates: start: 20051008

REACTIONS (1)
  - FEMORAL ARTERY OCCLUSION [None]
